FAERS Safety Report 10419790 (Version 1)
Quarter: 2014Q2

REPORT INFORMATION
  Report Type: Spontaneous
  Country: US (occurrence: None)
  Receive Date: 20140625
  Receipt Date: 20140625
  Transmission Date: 20141212
  Serious: Yes (Other)
  Sender: FDA-Public Use
  Company Number: PHEH2014US005046

PATIENT
  Age: 59 Year
  Sex: Male

DRUGS (20)
  1. AFINITOR [Suspect]
     Indication: MENINGIOMA
     Route: 048
  2. KEPPRA (LEVETIRACETAM) [Concomitant]
  3. LIPITOR (ATORVASTATIN CALCIUM) [Concomitant]
  4. ASA (ACETYLSALICYLIC ACID) [Concomitant]
  5. MULTI-VIT (VITAMINS NOS) [Concomitant]
  6. ADVIL (CHLORPHENIMAINE MALEATE, IBUPROFEN, PHENYLEPHRINE HYDROCHLORIDE) [Concomitant]
  7. TOPROL (METOPROLOL SUCCINATE) [Concomitant]
  8. MAIXIDENE (PIROXICAM) [Concomitant]
  9. ADDERALL (AMFETAMINE ASPARTATE, AMFETAMINE SULFATE, SULFATE, DEXAFETAMINE SACCHARATE, DEXAMFETAMINE SULFATE) [Concomitant]
  10. AMPHETAMINE TABLET [Concomitant]
  11. LEVETIRACETAM [Concomitant]
  12. MULTI VITAMIN + MINERAL (ASCORBIC ACID, BETACAROTENE, BIOTIN, CALCIUM LACTATE, CHOLINE BITARTRATE, CHROMIUM NICOTINATE, COLECALCIFEROL, CYANOCOBALAMIN, DEXPANTHENOL, DL-SELENOMETHIONINE, FOLIC ACID, INOSITOL, MAGNESIUM LACTATE, MANGANESE GLUCONATE, NICOT [Concomitant]
  13. COENZYME Q-GEL (UBIDECARENONE) CAPSULE [Concomitant]
  14. ATORVASTATIN TABLET [Concomitant]
  15. METOPROLOL SUCCINATE [Concomitant]
  16. NIACIN (NICOTINIC ACID) TABLET [Concomitant]
  17. ASPIRIN (ACETYLSALICYLIC ACID) TABLET [Concomitant]
  18. MAXZIDE (HYDROCHLOROTHIAZIDE, TRIAMTERENE) [Concomitant]
  19. VITAMIN D (ERGOCALCIFEROL) TABLET [Concomitant]
  20. VITAMIN D (ERGOCALCIFEROL) TABLET [Concomitant]

REACTIONS (3)
  - Local swelling [None]
  - Drug intolerance [None]
  - Neoplasm [None]
